FAERS Safety Report 18775307 (Version 2)
Quarter: 2021Q1

REPORT INFORMATION
  Report Type: Spontaneous
  Country: US (occurrence: US)
  Receive Date: 20210122
  Receipt Date: 20210204
  Transmission Date: 20210419
  Serious: Yes (Death, Hospitalization)
  Sender: FDA-Public Use
  Company Number: US-SEPTODONT-202006005

PATIENT
  Age: 58 Year
  Sex: Male

DRUGS (1)
  1. ARTICAINE 4% WITH EPINEPHRINE 1:200,000 [Suspect]
     Active Substance: ARTICAINE\EPINEPHRINE
     Indication: DENTAL LOCAL ANAESTHESIA
     Route: 004
     Dates: start: 20210104, end: 20210104

REACTIONS (2)
  - Dyspnoea [Fatal]
  - Death [Fatal]
